FAERS Safety Report 12070279 (Version 1)
Quarter: 2016Q1

REPORT INFORMATION
  Report Type: Spontaneous
  Country: FR (occurrence: FR)
  Receive Date: 20160211
  Receipt Date: 20160211
  Transmission Date: 20160526
  Serious: Yes (Hospitalization)
  Sender: FDA-Public Use
  Company Number: FR-PFIZER INC-2016068700

PATIENT
  Age: 17 Year
  Sex: Female

DRUGS (4)
  1. PROZAC [Suspect]
     Active Substance: FLUOXETINE HYDROCHLORIDE
     Dosage: 12 DF OF 20 MG, SINGLE
     Route: 048
     Dates: start: 20160112, end: 20160112
  2. PROZAC [Suspect]
     Active Substance: FLUOXETINE HYDROCHLORIDE
     Indication: MAJOR DEPRESSION
     Dosage: 20 MG, 1X/DAY
     Route: 048
     Dates: start: 201601
  3. XANAX [Suspect]
     Active Substance: ALPRAZOLAM
     Indication: ANXIETY DISORDER
     Dosage: 0.25 MG, 1X/DAY
     Route: 048
     Dates: start: 201601
  4. XANAX [Suspect]
     Active Substance: ALPRAZOLAM
     Dosage: 5 DF OF 0.25 MG, SINGLE
     Route: 048
     Dates: start: 20160112, end: 20160112

REACTIONS (1)
  - Suicide attempt [Recovered/Resolved]

NARRATIVE: CASE EVENT DATE: 20160112
